FAERS Safety Report 4509625-6 (Version None)
Quarter: 2004Q4

REPORT INFORMATION
  Report Type: 
  Country: None (occurrence: None)
  Receive Date: 20041124
  Receipt Date: 20030902
  Transmission Date: 20050328
  Serious: No
  Sender: FDA-Public Use
  Company Number: US-BRISTOL-MYERS SQUIBB COMPANY-12370698

PATIENT
  Age: 55 Year
  Sex: Male
  Weight: 91 kg

DRUGS (5)
  1. AVALIDE [Suspect]
     Indication: HYPERTENSION
     Dosage: DOSAGE FORM = 300MG/12.5MG
     Route: 048
     Dates: start: 20020101
  2. AVALIDE [Suspect]
  3. ASTELIN SPRAY [Concomitant]
     Indication: SEASONAL ALLERGY
  4. NORVASC [Concomitant]
  5. VITAMIN E [Concomitant]

REACTIONS (2)
  - DYSGEUSIA [None]
  - ERUCTATION [None]
